FAERS Safety Report 22186587 (Version 1)
Quarter: 2023Q2

REPORT INFORMATION
  Report Type: Spontaneous
  Country: CA (occurrence: CA)
  Receive Date: 20230407
  Receipt Date: 20230407
  Transmission Date: 20230721
  Serious: Yes (Life-Threatening, Hospitalization, Other)
  Sender: FDA-Public Use
  Company Number: CA-TEVA-2023-CA-2873072

PATIENT
  Age: 11 Year
  Sex: Female

DRUGS (5)
  1. METHYLPREDNISOLONE [Interacting]
     Active Substance: METHYLPREDNISOLONE
     Indication: Dermatitis infected
     Dosage: FREQUENCY TIME : TOTAL
     Route: 042
  2. ERELZI [Suspect]
     Active Substance: ETANERCEPT-SZZS
     Indication: Dermatitis infected
     Route: 058
  3. ERELZI [Suspect]
     Active Substance: ETANERCEPT-SZZS
     Indication: Product used for unknown indication
     Route: 058
  4. HUMAN IMMUNOGLOBULIN G [Suspect]
     Active Substance: HUMAN IMMUNOGLOBULIN G
     Indication: Multisystem inflammatory syndrome
     Route: 065
  5. HUMAN IMMUNOGLOBULIN G [Suspect]
     Active Substance: HUMAN IMMUNOGLOBULIN G
     Indication: Mucosal erosion
     Dosage: FREQUENCY TIME : TOTAL
     Route: 042

REACTIONS (3)
  - Drug ineffective for unapproved indication [Recovered/Resolved]
  - Drug interaction [Recovered/Resolved]
  - Off label use [Recovered/Resolved]
